FAERS Safety Report 14361235 (Version 6)
Quarter: 2018Q2

REPORT INFORMATION
  Report Type: Spontaneous
  Country: DE (occurrence: DE)
  Receive Date: 20180108
  Receipt Date: 20180529
  Transmission Date: 20180711
  Serious: Yes (Life-Threatening, Hospitalization, Other)
  Sender: FDA-Public Use
  Company Number: DE-JNJFOC-20171238661

PATIENT
  Age: 48 Year
  Sex: Male

DRUGS (4)
  1. IBUPROFEN. [Suspect]
     Active Substance: IBUPROFEN
     Indication: PAIN
     Dosage: START PERIOD 40 (HOURS)
     Route: 048
  2. IBUPROFEN. [Suspect]
     Active Substance: IBUPROFEN
     Indication: SUICIDE ATTEMPT
     Route: 048
  3. IBUPROFEN. [Suspect]
     Active Substance: IBUPROFEN
     Indication: SUICIDE ATTEMPT
     Dosage: START PERIOD 40 (HOURS)
     Route: 048
  4. IBUPROFEN. [Suspect]
     Active Substance: IBUPROFEN
     Indication: PAIN
     Route: 048

REACTIONS (8)
  - Suicide attempt [Recovering/Resolving]
  - Intentional overdose [Unknown]
  - Dehydration [Recovering/Resolving]
  - Toxicity to various agents [Unknown]
  - Circulatory collapse [Recovering/Resolving]
  - Metabolic acidosis [Unknown]
  - Coma scale abnormal [Unknown]
  - Acute kidney injury [Unknown]
